FAERS Safety Report 8599867 (Version 3)
Quarter: 2012Q4

REPORT INFORMATION
  Report Type: 
  Country: US (occurrence: US)
  Receive Date: 20120605
  Receipt Date: 20121127
  Transmission Date: 20130627
  Serious: Yes (Hospitalization)
  Sender: FDA-Public Use
  Company Number: US-PFIZER INC-2012130043

PATIENT
  Age: 86 Year
  Sex: Male
  Weight: 63.49 kg

DRUGS (3)
  1. AZITHROMYCIN [Suspect]
     Indication: COLD
     Dosage: UNK
     Dates: start: 20120220, end: 201203
  2. SYNTHROID [Concomitant]
     Indication: THYROID DISORDER
     Dosage: UNK, daily
  3. ACETYLSALICYLIC ACID [Concomitant]
     Dosage: UNK, daily

REACTIONS (4)
  - Jaundice [Recovering/Resolving]
  - Gait disturbance [Recovering/Resolving]
  - Weight decreased [Unknown]
  - Asthenia [Recovering/Resolving]
